FAERS Safety Report 5721675-0 (Version None)
Quarter: 2008Q2

REPORT INFORMATION
  Report Type: 
  Country: None (occurrence: None)
  Receive Date: 20080429
  Receipt Date: 20070503
  Transmission Date: 20081010
  Serious: No
  Sender: FDA-Public Use
  Company Number: US-ASTRAZENECA-2007UW09408

PATIENT
  Age: 73 Year
  Sex: Female
  Weight: 74.4 kg

DRUGS (9)
  1. NEXIUM [Suspect]
     Indication: GASTROOESOPHAGEAL REFLUX DISEASE
     Route: 048
     Dates: start: 20030101
  2. CORGARD [Concomitant]
  3. ASPIRIN [Concomitant]
  4. FISH OIL [Concomitant]
  5. MIACALCIN [Concomitant]
  6. CALCIUM [Concomitant]
  7. EVISTA [Concomitant]
  8. OVER THE COUNT IRRITABLE BOWEL SYNDROME MEDICATION [Concomitant]
  9. ADVANTAGE [Concomitant]

REACTIONS (2)
  - BONE DENSITY DECREASED [None]
  - OSTEOPENIA [None]
